FAERS Safety Report 12654262 (Version 2)
Quarter: 2016Q3

REPORT INFORMATION
  Report Type: Spontaneous
  Country: US (occurrence: US)
  Receive Date: 20160816
  Receipt Date: 20160817
  Transmission Date: 20161109
  Serious: No
  Sender: FDA-Public Use
  Company Number: ALCN2016US005677

PATIENT
  Age: 80 Year
  Sex: Female

DRUGS (1)
  1. NATACYN [Suspect]
     Active Substance: NATAMYCIN
     Indication: EYE INFECTION FUNGAL
     Dosage: 1 GTT, QD (Q 1 TO 2 HOURS)
     Route: 047
     Dates: start: 20160808, end: 20160811

REACTIONS (3)
  - Ocular discomfort [Recovered/Resolved]
  - Eye discharge [Recovered/Resolved]
  - Product deposit [Recovered/Resolved]

NARRATIVE: CASE EVENT DATE: 20160808
